FAERS Safety Report 21228555 (Version 1)
Quarter: 2022Q3

REPORT INFORMATION
  Report Type: Spontaneous
  Country: AU (occurrence: AU)
  Receive Date: 20220818
  Receipt Date: 20220818
  Transmission Date: 20221027
  Serious: Yes (Other)
  Sender: FDA-Public Use
  Company Number: AU-MYLANLABS-2022M1086303

PATIENT
  Age: 80 Year
  Sex: Female

DRUGS (6)
  1. CYPROHEPTADINE [Suspect]
     Active Substance: CYPROHEPTADINE
     Indication: Acquired perforating dermatosis
     Dosage: UNK
     Route: 065
  2. FEXOFENADINE [Suspect]
     Active Substance: FEXOFENADINE HYDROCHLORIDE
     Indication: Acquired perforating dermatosis
     Dosage: UNK
     Route: 065
  3. DOXYCYCLINE [Suspect]
     Active Substance: DOXYCYCLINE
     Indication: Acquired perforating dermatosis
     Dosage: UNK
     Route: 065
  4. ACITRETIN [Suspect]
     Active Substance: ACITRETIN
     Indication: Acquired perforating dermatosis
     Dosage: UNK
     Route: 065
  5. DAPSONE [Suspect]
     Active Substance: DAPSONE
     Indication: Acquired perforating dermatosis
     Dosage: UNK
     Route: 065
  6. PREDNISOLONE [Concomitant]
     Active Substance: PREDNISOLONE
     Indication: Acquired perforating dermatosis
     Dosage: 0.5 MILLIGRAM/KILOGRAM, QD
     Route: 065

REACTIONS (2)
  - Treatment failure [Unknown]
  - Off label use [Unknown]
